FAERS Safety Report 4900760-7 (Version None)
Quarter: 2006Q1

REPORT INFORMATION
  Report Type: 
  Country: None (occurrence: None)
  Receive Date: 20060201
  Receipt Date: 20060113
  Transmission Date: 20060701
  Serious: Yes (Other)
  Sender: FDA-Public Use
  Company Number: GB200601002210

PATIENT
  Sex: Female
  Weight: 1.9 kg

DRUGS (2)
  1. PROZAC [Suspect]
     Dosage: TRANSPLACENTAL
     Route: 064
     Dates: start: 20040101
  2. LEVOTHYROXINE SODIUM [Concomitant]

REACTIONS (9)
  - CAESAREAN SECTION [None]
  - CONVULSION NEONATAL [None]
  - DRUG EXPOSURE DURING PREGNANCY [None]
  - FOETAL DISTRESS SYNDROME [None]
  - HYPOGLYCAEMIA NEONATAL [None]
  - MATERNAL CONDITION AFFECTING FOETUS [None]
  - NEONATAL RESPIRATORY DISTRESS SYNDROME [None]
  - PREMATURE BABY [None]
  - SMALL FOR DATES BABY [None]
